FAERS Safety Report 4708099-X (Version None)
Quarter: 2005Q3

REPORT INFORMATION
  Report Type: 
  Country: None (occurrence: None)
  Receive Date: 20050707
  Receipt Date: 20050520
  Transmission Date: 20060218
  Serious: Yes (Other)
  Sender: FDA-Public Use
  Company Number: PHBS2005BE07279

PATIENT
  Age: 79 Year
  Sex: Male

DRUGS (2)
  1. ZOMETA [Suspect]
     Dosage: UNK, UNK
     Route: 042
     Dates: start: 20031201, end: 20050218
  2. AREDIA [Concomitant]
     Dosage: EVERY 6 WEEKS
     Route: 042
     Dates: start: 20050302

REACTIONS (5)
  - ASEPTIC NECROSIS BONE [None]
  - BONE DISORDER [None]
  - OPEN WOUND [None]
  - RADIATION INJURY [None]
  - TONGUE DISORDER [None]
